FAERS Safety Report 9840104 (Version 1)
Quarter: 2013Q4

REPORT INFORMATION
  Report Type: Spontaneous
  Country: US (occurrence: None)
  Receive Date: 20131211
  Receipt Date: 20131211
  Transmission Date: 20140711
  Serious: No
  Sender: FDA-Public Use
  Company Number: ALL1-2013-00294

PATIENT
  Age: 18 Year
  Sex: Female
  Weight: 45.4 kg

DRUGS (6)
  1. FIRAZYR [Suspect]
     Indication: HEREDITARY ANGIOEDEMA
     Dosage: 30 MG, AS REQ^D (EVERY 6 HOURS), SUBCUTANEOUS
     Route: 058
     Dates: start: 20121203
  2. CINRYZE (COMPLEMENT C1 ESTERASE INHIBITOR) [Concomitant]
  3. ZOLOFT (SERTRALINE HYDROCHLORIDE) [Concomitant]
  4. TOPMAX (TOPIRAMATE) [Concomitant]
  5. CEPHALEXIN [Concomitant]
  6. BALZIVA (ETHINYLESTRADIOL, NORETHISTERONE) [Concomitant]

REACTIONS (5)
  - Injection site mass [None]
  - Injection site pain [None]
  - Injection site erythema [None]
  - Injection site swelling [None]
  - Burning sensation [None]
